FAERS Safety Report 10551234 (Version 3)
Quarter: 2014Q4

REPORT INFORMATION
  Report Type: Spontaneous
  Country: JP (occurrence: JP)
  Receive Date: 20141029
  Receipt Date: 20141118
  Transmission Date: 20150529
  Serious: Yes (Other)
  Sender: FDA-Public Use
  Company Number: JP-TEVA-509211USA

PATIENT
  Age: 60 Year
  Sex: Male

DRUGS (12)
  1. DEXAMETHASONE SODIUM PHOSPHATE. [Concomitant]
     Active Substance: DEXAMETHASONE SODIUM PHOSPHATE
     Indication: PROPHYLAXIS OF NAUSEA AND VOMITING
     Dosage: 6.6 MG/DAY
     Route: 042
     Dates: start: 20140903
  2. RITUXIMAB [Concomitant]
     Active Substance: RITUXIMAB
     Route: 065
     Dates: start: 20140902
  3. DIPHENHYDRAMINE HYDROCHLORIDE. [Concomitant]
     Active Substance: DIPHENHYDRAMINE HYDROCHLORIDE
     Indication: PREMEDICATION
     Dosage: 3 DF/DAY, UNKNOWN FREQ.
     Route: 048
     Dates: start: 20140902
  4. NAPROXEN. [Concomitant]
     Active Substance: NAPROXEN
     Indication: PREMEDICATION
     Dosage: 300 MG/DAY, UNKNOWN FREQ.
     Route: 048
     Dates: start: 20140902
  5. BENDAMUSTINE [Suspect]
     Active Substance: BENDAMUSTINE
     Indication: B-CELL LYMPHOMA
     Route: 042
     Dates: start: 20140903, end: 20140904
  6. GRANISETRON HYDROCHLORIDE. [Concomitant]
     Active Substance: GRANISETRON HYDROCHLORIDE
     Indication: PROPHYLAXIS OF NAUSEA AND VOMITING
     Dosage: 1 DF/DAY, UNKNOWN FREQ.
     Route: 042
     Dates: start: 20140903
  7. APREPITANT. [Concomitant]
     Active Substance: APREPITANT
     Indication: PROPHYLAXIS OF NAUSEA AND VOMITING
     Dosage: 1 DF/DAY, UNKNOWN FREQ.
     Route: 048
     Dates: start: 20140903
  8. AMLODIPINE BESILATE [Concomitant]
     Active Substance: AMLODIPINE BESYLATE
     Indication: HYPERTENSION
     Dosage: 10 MG/DAY, UNKNOWN FREQ.
     Route: 048
  9. RITUXIMAB [Concomitant]
     Active Substance: RITUXIMAB
     Indication: PRODUCT USED FOR UNKNOWN INDICATION
     Dosage: UNK UNK, UNKNOWN FREQ.
     Route: 065
     Dates: start: 20140819
  10. RITUXIMAB [Concomitant]
     Active Substance: RITUXIMAB
     Route: 065
     Dates: start: 20140826
  11. CANDESARTAN CILEXETIL. [Concomitant]
     Active Substance: CANDESARTAN CILEXETIL
     Indication: HYPERTENSION
     Dosage: 1 DF/DAY, UNKNOWN FREQ.
     Route: 048
     Dates: start: 20140823
  12. FEBUXOSTAT. [Concomitant]
     Active Substance: FEBUXOSTAT
     Indication: HYPERURICAEMIA
     Dosage: 10 MG/DAY, UNKNOWN FREQ.
     Route: 048
     Dates: start: 20140815

REACTIONS (1)
  - Renal tubular necrosis [Recovering/Resolving]

NARRATIVE: CASE EVENT DATE: 201409
